FAERS Safety Report 15888333 (Version 1)
Quarter: 2019Q1

REPORT INFORMATION
  Report Type: Report from Study
  Country: US (occurrence: US)
  Receive Date: 20190130
  Receipt Date: 20190130
  Transmission Date: 20190417
  Serious: Yes (Other)
  Sender: FDA-Public Use
  Company Number: US-HLSUS-2018-US-001250

PATIENT
  Age: 67 Year
  Sex: Female

DRUGS (2)
  1. DEPAKENE [Concomitant]
     Active Substance: VALPROIC ACID
     Indication: AFFECTIVE DISORDER
     Dosage: 750 MG TWICE DAILY
     Route: 048
     Dates: start: 20181217
  2. CLOZARIL [Suspect]
     Active Substance: CLOZAPINE
     Dosage: 25 MG TWICE DAILY
     Dates: start: 20181217, end: 20181225

REACTIONS (2)
  - Treatment noncompliance [Unknown]
  - Neutropenia [Unknown]

NARRATIVE: CASE EVENT DATE: 20181218
